FAERS Safety Report 5918465-2 (Version None)
Quarter: 2008Q4

REPORT INFORMATION
  Report Type: 
  Country: None (occurrence: None)
  Receive Date: 20081015
  Receipt Date: 20081006
  Transmission Date: 20090506
  Serious: Yes (Death, Life-Threatening, Hospitalization, Other)
  Sender: FDA-Public Use
  Company Number: GB-JNJFOC-20080704479

PATIENT
  Age: 54 Year
  Sex: Female
  Weight: 66 kg

DRUGS (11)
  1. REMICADE [Suspect]
     Route: 042
  2. REMICADE [Suspect]
     Indication: RHEUMATOID ARTHRITIS
     Route: 042
  3. NAPROSYN [Concomitant]
  4. METHOTREXATE [Concomitant]
  5. DIHYDROCODEINE BITARTRATE INJ [Concomitant]
  6. FERROUS SULFATE [Concomitant]
  7. ZOCOR [Concomitant]
  8. HYDROXYCHLOROQUINE [Concomitant]
  9. INDOMETHACIN [Concomitant]
  10. LEFLUNOMIDE [Concomitant]
  11. LANSOPRAZOLE [Concomitant]

REACTIONS (3)
  - MULTI-ORGAN FAILURE [None]
  - PNEUMONIA [None]
  - RENAL FAILURE [None]
